FAERS Safety Report 7057512-4 (Version None)
Quarter: 2010Q4

REPORT INFORMATION
  Report Type: 
  Country: None (occurrence: None)
  Receive Date: 20101022
  Receipt Date: 20101013
  Transmission Date: 20110411
  Serious: Yes (Hospitalization, Other)
  Sender: FDA-Public Use
  Company Number: PHHO2010DE13329

PATIENT
  Sex: Male
  Weight: 99.1 kg

DRUGS (6)
  1. STI571/CGP57148B T35717+TAB [Suspect]
     Indication: COLORECTAL CANCER
     Dosage: 300 MG, QD
     Route: 048
     Dates: start: 20090306, end: 20100827
  2. STI571/CGP57148B T35717+TAB [Suspect]
     Dosage: 300 MG, QD
     Route: 048
     Dates: end: 20100915
  3. CAPECITABINE [Suspect]
     Indication: COLORECTAL CANCER
     Dosage: 2000 MG, BID
     Route: 048
     Dates: start: 20090306, end: 20100827
  4. CAPECITABINE [Suspect]
     Dosage: 2000 MG, BID
     Route: 048
     Dates: end: 20100924
  5. BEVACIZUMAB [Concomitant]
     Indication: COLORECTAL CANCER
     Dosage: 800MG EVERY 3 WEEKS
     Route: 042
     Dates: start: 20090306, end: 20100827
  6. OXALIPLATIN [Concomitant]
     Indication: COLORECTAL CANCER
     Dosage: 200MG THREE WEEKLY
     Route: 042
     Dates: start: 20090306, end: 20100827

REACTIONS (3)
  - NEOPLASM MALIGNANT [None]
  - PANCREATIC CARCINOMA [None]
  - PANCREATITIS [None]
